FAERS Safety Report 14771042 (Version 1)
Quarter: 2018Q2

REPORT INFORMATION
  Report Type: Spontaneous
  Country: US (occurrence: US)
  Receive Date: 20180417
  Receipt Date: 20180417
  Transmission Date: 20180711
  Serious: No
  Sender: FDA-Public Use
  Company Number: US-ALLERGAN-1811897US

PATIENT
  Sex: Female
  Weight: 63 kg

DRUGS (1)
  1. LATISSE [Suspect]
     Active Substance: BIMATOPROST
     Indication: GROWTH OF EYELASHES
     Route: 061

REACTIONS (2)
  - Hordeolum [Recovered/Resolved]
  - Wrong technique in product usage process [Unknown]
